FAERS Safety Report 16180470 (Version 4)
Quarter: 2022Q1

REPORT INFORMATION
  Report Type: Spontaneous
  Country: US (occurrence: US)
  Receive Date: 20190410
  Receipt Date: 20220109
  Transmission Date: 20220423
  Serious: No
  Sender: FDA-Public Use
  Company Number: US-SA-2019SA100111

PATIENT
  Age: 44 Year
  Sex: Male

DRUGS (13)
  1. DUPIXENT [Suspect]
     Active Substance: DUPILUMAB
     Indication: Dermatitis atopic
     Dosage: 300 MG, QOW
     Route: 058
     Dates: start: 20180215
  2. DUPIXENT [Suspect]
     Active Substance: DUPILUMAB
     Dosage: 300 MG, QOW
     Route: 058
     Dates: start: 20210324
  3. SOTALOL [Concomitant]
     Active Substance: SOTALOL
  4. ELIQUIS [Concomitant]
     Active Substance: APIXABAN
  5. SERTRALINE [Concomitant]
     Active Substance: SERTRALINE HYDROCHLORIDE
  6. DOXEPIN [Concomitant]
     Active Substance: DOXEPIN
  7. ASPIRIN [Concomitant]
     Active Substance: ASPIRIN
  8. DEPLIN [Concomitant]
     Active Substance: LEVOMEFOLATE CALCIUM
  9. MONTELUKAST [Concomitant]
     Active Substance: MONTELUKAST SODIUM
  10. BUPROPION [Concomitant]
     Active Substance: BUPROPION
  11. DEPLIN [LEVOMEFOLIC ACID] [Concomitant]
  12. DOXEPIN HCL [Concomitant]
     Active Substance: DOXEPIN HYDROCHLORIDE
  13. SOTALOL [Concomitant]
     Active Substance: SOTALOL
     Dosage: 120MG

REACTIONS (8)
  - Illness [Recovered/Resolved]
  - Influenza [Recovered/Resolved]
  - Discomfort [Not Recovered/Not Resolved]
  - Condition aggravated [Not Recovered/Not Resolved]
  - Rash [Not Recovered/Not Resolved]
  - Rash [Not Recovered/Not Resolved]
  - Dermatitis atopic [Not Recovered/Not Resolved]
  - Product dose omission issue [Unknown]

NARRATIVE: CASE EVENT DATE: 20190801
